FAERS Safety Report 8890281 (Version 1)
Quarter: 2012Q4

REPORT INFORMATION
  Report Type: 
  Country: CA (occurrence: CA)
  Receive Date: 20121106
  Receipt Date: 20121106
  Transmission Date: 20130627
  Serious: Yes (Other)
  Sender: FDA-Public Use
  Company Number: PHHO2005CA11162

PATIENT
  Sex: Female

DRUGS (1)
  1. SANDOSTATIN LAR (PATIENT BASIS) [Suspect]
     Indication: ACROMEGALY
     Dosage: 20 mg, Q4W
     Dates: start: 20030101

REACTIONS (16)
  - Chest pain [Unknown]
  - Hypertension [Unknown]
  - Mood altered [Unknown]
  - Bone pain [Unknown]
  - Arthralgia [Unknown]
  - Injection site reaction [Unknown]
  - Insomnia [Unknown]
  - Hyperhidrosis [Unknown]
  - Hot flush [Unknown]
  - Amenorrhoea [Unknown]
  - Mood swings [Unknown]
  - Muscle spasms [Unknown]
  - Dizziness [Unknown]
  - Hypoglycaemia [Unknown]
  - Fatigue [Unknown]
  - Blood glucose increased [Unknown]
